FAERS Safety Report 9736449 (Version 1)
Quarter: 2013Q4

REPORT INFORMATION
  Report Type: Spontaneous
  Country: US (occurrence: US)
  Receive Date: 20131206
  Receipt Date: 20131206
  Transmission Date: 20140711
  Serious: No
  Sender: FDA-Public Use
  Company Number: US-GLAXOSMITHKLINE-A1022056A

PATIENT
  Age: 68 Year
  Sex: Female

DRUGS (4)
  1. PROPAFENONE HYDROCHLORIDE [Suspect]
     Indication: ARRHYTHMIA
     Dosage: 150MG THREE TIMES PER DAY
     Route: 048
     Dates: start: 2010
  2. METOPROLOL [Concomitant]
  3. SIMVASTATIN [Concomitant]
  4. COUMADIN [Concomitant]

REACTIONS (3)
  - Drug ineffective [Unknown]
  - Extrasystoles [Unknown]
  - Heart rate increased [Unknown]
